FAERS Safety Report 4555700-X (Version None)
Quarter: 2005Q1

REPORT INFORMATION
  Report Type: 
  Country: None (occurrence: None)
  Receive Date: 20050119
  Receipt Date: 20050107
  Transmission Date: 20050727
  Serious: Yes (Death, Hospitalization)
  Sender: FDA-Public Use
  Company Number: FR-JNJFOC-20050102364

PATIENT
  Age: 81 Year
  Sex: Male

DRUGS (12)
  1. TOPALGIC [Suspect]
     Indication: DRUG USE FOR UNKNOWN INDICATION
     Route: 049
  2. LASILIX [Suspect]
     Indication: DRUG USE FOR UNKNOWN INDICATION
     Route: 049
  3. TRIATEC [Suspect]
     Indication: DRUG USE FOR UNKNOWN INDICATION
     Route: 049
  4. KARDEGIC [Suspect]
     Indication: DRUG USE FOR UNKNOWN INDICATION
     Route: 049
  5. KALEORID [Suspect]
     Indication: DRUG USE FOR UNKNOWN INDICATION
     Route: 049
  6. ALDACTONE [Suspect]
     Indication: DRUG USE FOR UNKNOWN INDICATION
     Route: 049
  7. FONZYLANE [Concomitant]
     Route: 065
  8. TORENTAL [Concomitant]
     Route: 049
  9. LOVENOX [Concomitant]
     Route: 065
  10. DIGOXIN [Concomitant]
     Route: 065
  11. PLAVIX [Concomitant]
     Route: 049
  12. FRAXODI [Concomitant]
     Route: 058

REACTIONS (10)
  - BLOOD CREATINE PHOSPHOKINASE INCREASED [None]
  - CYANOSIS [None]
  - HEPATIC FAILURE [None]
  - HEPATITIS FULMINANT [None]
  - OEDEMA PERIPHERAL [None]
  - RENAL FAILURE ACUTE [None]
  - SHOCK [None]
  - SKIN ULCER [None]
  - URINARY RETENTION [None]
  - VENOUS PRESSURE JUGULAR INCREASED [None]
